FAERS Safety Report 8561558-4 (Version None)
Quarter: 2012Q3

REPORT INFORMATION
  Report Type: 
  Country: None (occurrence: None)
  Receive Date: 20120802
  Receipt Date: 20120731
  Transmission Date: 20120928
  Serious: Yes (Hospitalization)
  Sender: FDA-Public Use
  Company Number: PHHY2012FR065404

PATIENT
  Age: 30 Year
  Sex: Female

DRUGS (1)
  1. COTRIM [Suspect]

REACTIONS (10)
  - EOSINOPHILIA [None]
  - RASH [None]
  - RASH GENERALISED [None]
  - LYMPHADENOPATHY [None]
  - DRUG RASH WITH EOSINOPHILIA AND SYSTEMIC SYMPTOMS [None]
  - CYTOMEGALOVIRUS INFECTION [None]
  - CYTOLYTIC HEPATITIS [None]
  - RASH MACULO-PAPULAR [None]
  - HYPERTHERMIA [None]
  - SWELLING FACE [None]
